FAERS Safety Report 6892611-9 (Version None)
Quarter: 2010Q3

REPORT INFORMATION
  Report Type: 
  Country: None (occurrence: None)
  Receive Date: 20100731
  Receipt Date: 20080723
  Transmission Date: 20110219
  Serious: No
  Sender: FDA-Public Use
  Company Number: US-PFIZER INC-2008061755

PATIENT
  Sex: Male
  Weight: 97.52 kg

DRUGS (2)
  1. CAVERJECT [Suspect]
     Indication: ERECTILE DYSFUNCTION
  2. ATACAND [Concomitant]
     Indication: HYPERTENSION

REACTIONS (2)
  - DRUG INEFFECTIVE [None]
  - WRONG TECHNIQUE IN DRUG USAGE PROCESS [None]
